FAERS Safety Report 12251792 (Version 1)
Quarter: 2016Q2

REPORT INFORMATION
  Report Type: Other
  Country: GB (occurrence: GB)
  Receive Date: 20160411
  Receipt Date: 20160411
  Transmission Date: 20160815
  Serious: Yes (Hospitalization, Other)
  Sender: FDA-Public Use
  Company Number: GB-CIPLA LTD.-2016GB03635

PATIENT

DRUGS (14)
  1. FUROSEMIDE. [Concomitant]
     Active Substance: FUROSEMIDE
     Dosage: 1 DF, QD, EACH MORNING
     Route: 065
     Dates: start: 20160107, end: 20160229
  2. SPIRONOLACTONE. [Concomitant]
     Active Substance: SPIRONOLACTONE
     Dosage: 1 DF, QD, IN THE MORNING
     Route: 065
     Dates: start: 20151217, end: 20160229
  3. OMEPRAZOLE. [Concomitant]
     Active Substance: OMEPRAZOLE
     Dosage: 1 DF, QD
     Route: 065
     Dates: start: 20160107
  4. CANDESARTAN [Concomitant]
     Active Substance: CANDESARTAN
     Dosage: 1 DF, QD
     Route: 065
     Dates: start: 20151012
  5. DESUNIN [Concomitant]
     Active Substance: CHOLECALCIFEROL
     Dosage: 1 DF, QD
     Route: 065
     Dates: start: 20160208
  6. ASPIRIN. [Concomitant]
     Active Substance: ASPIRIN
     Dosage: 1 DF, QD
     Route: 065
     Dates: start: 20151012
  7. ORLISTAT [Concomitant]
     Active Substance: ORLISTAT
     Dosage: 1 DF, TID
     Route: 065
     Dates: start: 20160121
  8. AMLODIPINE [Suspect]
     Active Substance: AMLODIPINE BESYLATE
     Dosage: UNK
     Route: 065
     Dates: start: 20151012
  9. COLECALCIFEROL [Concomitant]
     Active Substance: CHOLECALCIFEROL
     Dosage: 1 DF, TAKE ON TABLET MONDAYS AND THURSDAYS FOR 7 WEEKS
     Route: 065
     Dates: start: 20160107, end: 20160109
  10. ISOSORBIDE MONONITRATE. [Concomitant]
     Active Substance: ISOSORBIDE MONONITRATE
     Dosage: 1 DF, QD
     Route: 065
     Dates: start: 20151012
  11. METFORMIN [Concomitant]
     Active Substance: METFORMIN HYDROCHLORIDE
     Dosage: 1 DF, BID, WITH MEALS
     Route: 065
     Dates: start: 20151012
  12. ATORVASTATIN [Concomitant]
     Active Substance: ATORVASTATIN
     Dosage: 1 DF, QD
     Route: 065
     Dates: start: 20151012
  13. IVABRADINE HYDROCHLORIDE [Suspect]
     Active Substance: IVABRADINE HYDROCHLORIDE
     Dosage: 1 DF, BID
     Route: 065
     Dates: start: 20160229
  14. DOXAZOSIN [Concomitant]
     Active Substance: DOXAZOSIN\DOXAZOSIN MESYLATE
     Dosage: 1 DF, QD
     Route: 065
     Dates: start: 20160208, end: 20160307

REACTIONS (5)
  - Circumoral oedema [Unknown]
  - Swelling face [Unknown]
  - Periorbital oedema [Unknown]
  - Urticaria [Unknown]
  - Hypersensitivity [Unknown]

NARRATIVE: CASE EVENT DATE: 20160317
